FAERS Safety Report 8491123-9 (Version None)
Quarter: 2012Q3

REPORT INFORMATION
  Report Type: 
  Country: None (occurrence: None)
  Receive Date: 20120706
  Receipt Date: 20120702
  Transmission Date: 20120928
  Serious: Yes (Other)
  Sender: FDA-Public Use
  Company Number: US-BAYER-2012-046798

PATIENT
  Age: 29 Year
  Sex: Female

DRUGS (2)
  1. ALBUTEROL [Concomitant]
     Dosage: UNK
     Dates: start: 20050818
  2. YASMIN [Suspect]
     Dosage: UNK
     Dates: start: 20050412, end: 20050818

REACTIONS (3)
  - DEEP VEIN THROMBOSIS [None]
  - INJURY [None]
  - PAIN [None]
